FAERS Safety Report 18991718 (Version 1)
Quarter: 2021Q1

REPORT INFORMATION
  Report Type: Spontaneous
  Country: US (occurrence: US)
  Receive Date: 20210309
  Receipt Date: 20210309
  Transmission Date: 20210420
  Serious: Yes (Other)
  Sender: FDA-Public Use
  Company Number: None

PATIENT
  Age: 70 Year
  Sex: Female
  Weight: 100.6 kg

DRUGS (2)
  1. PACLITAXEL. [Suspect]
     Active Substance: PACLITAXEL
     Indication: BREAST CANCER
     Route: 041
     Dates: start: 20210122
  2. TRASTUZUMAB?DKST (OGIVRI) [Concomitant]
     Dates: start: 20210122

REACTIONS (4)
  - Rash erythematous [None]
  - Xeroderma [None]
  - Skin exfoliation [None]
  - Skin fissures [None]

NARRATIVE: CASE EVENT DATE: 20210305
